FAERS Safety Report 10568788 (Version 2)
Quarter: 2014Q4

REPORT INFORMATION
  Report Type: Report from Study
  Country: CO (occurrence: CO)
  Receive Date: 20141106
  Receipt Date: 20141112
  Transmission Date: 20150529
  Serious: Yes (Hospitalization)
  Sender: FDA-Public Use
  Company Number: CO-BRISTOL-MYERS SQUIBB COMPANY-21554597

PATIENT
  Age: 55 Year
  Sex: Female

DRUGS (1)
  1. YERVOY [Suspect]
     Active Substance: IPILIMUMAB
     Indication: METASTATIC MALIGNANT MELANOMA
     Dosage: 220MG:1/21/DAYS
     Dates: start: 20141007

REACTIONS (2)
  - Laboratory test abnormal [Recovering/Resolving]
  - Thyroid neoplasm [Recovering/Resolving]

NARRATIVE: CASE EVENT DATE: 20141028
